FAERS Safety Report 17132075 (Version 2)
Quarter: 2019Q4

REPORT INFORMATION
  Report Type: Spontaneous
  Country: IT (occurrence: IT)
  Receive Date: 20191210
  Receipt Date: 20191219
  Transmission Date: 20200122
  Serious: Yes (Other)
  Sender: FDA-Public Use
  Company Number: IT-SA-2019SA337566

PATIENT
  Age: 44 Year
  Sex: Female

DRUGS (2)
  1. INSULIN GLARGINE [Suspect]
     Active Substance: INSULIN GLARGINE
     Indication: DIABETES MELLITUS
     Dosage: 1 DF, QD
     Route: 058
  2. INSULIN ASPART [Interacting]
     Active Substance: INSULIN ASPART
     Indication: DIABETES MELLITUS
     Dosage: 1 DF, QD
     Route: 058

REACTIONS (4)
  - Hypoglycaemia [Recovering/Resolving]
  - Drug interaction [Unknown]
  - Loss of consciousness [Recovering/Resolving]
  - Hyperhidrosis [Recovering/Resolving]

NARRATIVE: CASE EVENT DATE: 20191012
